FAERS Safety Report 20508577 (Version 1)
Quarter: 2022Q1

REPORT INFORMATION
  Report Type: Spontaneous
  Country: US (occurrence: None)
  Receive Date: 20220223
  Receipt Date: 20220223
  Transmission Date: 20220424
  Serious: Yes (unspecified)
  Sender: FDA-Public Use
  Company Number: None

PATIENT
  Age: 50 Year
  Sex: Male
  Weight: 110 kg

DRUGS (2)
  1. BAMLANIVIMAB [Suspect]
     Active Substance: BAMLANIVIMAB
     Indication: COVID-19
     Dosage: OTHER FREQUENCY : ONCE;?
     Route: 041
     Dates: start: 20220105, end: 20220105
  2. ETESEVIMAB [Suspect]
     Active Substance: ETESEVIMAB
     Indication: COVID-19
     Dosage: OTHER FREQUENCY : ONCE;?
     Route: 041
     Dates: start: 20220105, end: 20220105

REACTIONS (6)
  - Feeling hot [None]
  - Nausea [None]
  - Seizure [None]
  - Loss of consciousness [None]
  - Blood pressure decreased [None]
  - Heart rate decreased [None]

NARRATIVE: CASE EVENT DATE: 20220105
